FAERS Safety Report 8806990 (Version 1)
Quarter: 2012Q4

REPORT INFORMATION
  Report Type: 
  Country: US (occurrence: US)
  Receive Date: 20120925
  Receipt Date: 20120925
  Transmission Date: 20130627
  Serious: Yes (Death, Hospitalization)
  Sender: FDA-Public Use
  Company Number: US-ROCHE-1124634

PATIENT
  Sex: Male

DRUGS (3)
  1. AVASTIN [Suspect]
     Indication: RENAL CANCER
     Route: 065
     Dates: start: 20040315
  2. THALIDOMIDE [Concomitant]
  3. GEMZAR [Concomitant]

REACTIONS (6)
  - Death [Fatal]
  - Dyspnoea [Unknown]
  - Blood creatinine increased [Unknown]
  - Hyperkalaemia [Unknown]
  - Pleural effusion [Unknown]
  - Asthenia [Unknown]
